FAERS Safety Report 18929578 (Version 1)
Quarter: 2021Q1

REPORT INFORMATION
  Report Type: Report from Study
  Country: US (occurrence: US)
  Receive Date: 20210223
  Receipt Date: 20210223
  Transmission Date: 20210420
  Serious: Yes (Death, Other)
  Sender: FDA-Public Use
  Company Number: US-OTSUKA-2021_005680

PATIENT
  Age: 72 Year
  Sex: Male

DRUGS (1)
  1. ASTX727 [Suspect]
     Active Substance: CEDAZURIDINE\DECITABINE
     Indication: PRODUCT USED FOR UNKNOWN INDICATION
     Dosage: 135 MG (35 MG DECITABINE AND 100 MG CEDAZURIDINE), QD (ONE TIMES A DAY)
     Route: 048

REACTIONS (2)
  - Renal cancer [Unknown]
  - Death [Fatal]

NARRATIVE: CASE EVENT DATE: 20210208
